FAERS Safety Report 4357336-2 (Version None)
Quarter: 2004Q2

REPORT INFORMATION
  Report Type: 
  Country: None (occurrence: None)
  Receive Date: 20040507
  Receipt Date: 20040416
  Transmission Date: 20050107
  Serious: Yes (Hospitalization, Other)
  Sender: FDA-Public Use
  Company Number: US_0404102394

PATIENT
  Age: 57 Year
  Sex: Male
  Weight: 84 kg

DRUGS (3)
  1. HUMULIN N [Suspect]
     Dates: start: 20010101
  2. HUMULIN R [Suspect]
     Dates: start: 20010101
  3. NOVOLIN R [Concomitant]

REACTIONS (1)
  - CORONARY ARTERY SURGERY [None]
